FAERS Safety Report 8791412 (Version 3)
Quarter: 2012Q4

REPORT INFORMATION
  Report Type: Spontaneous
  Country: US (occurrence: None)
  Receive Date: 20120911
  Receipt Date: 20121211
  Transmission Date: 20130627
  Serious: Yes (Death, Hospitalization)
  Sender: FDA-Public Use
  Company Number: 2012SGN00394

PATIENT
  Age: 71 Year
  Sex: Female
  Weight: 90.2 kg

DRUGS (8)
  1. BRENTUXIMAB VEDOTIN [Suspect]
     Indication: HODGKIN^S LYMPHOMA
     Dosage: 1.2 MG/KG, q14d, intravenous
     Route: 042
     Dates: start: 20120717, end: 20120814
  2. ADRIAMYCIN [Suspect]
     Indication: HODGKIN^S LYMPHOMA
     Dosage: 25 mg/m2, qcycle, intravenous
     Route: 042
     Dates: start: 20120814, end: 20120814
  3. VINBLASTINE [Suspect]
     Indication: HODGKIN^S LYMPHOMA
     Dosage: 6 mg/m2, qcycle, intravenous
     Route: 042
     Dates: start: 20120814, end: 20120814
  4. DACARBAZINE [Suspect]
     Indication: HODGKIN^S LYMPHOMA
     Dosage: 325 mg/m2, qcycle, intravenous
     Route: 042
     Dates: start: 20120814, end: 20120814
  5. COMPAZINE (PROCHLORPERAZINE EDISYLATE) [Concomitant]
  6. ZOFRAN (ONDANSETRON) [Concomitant]
  7. XANAX (ALPRAZOLAM) [Concomitant]
  8. RANITIDINE (RANITIDINE HYDROCHLORIDE) [Concomitant]

REACTIONS (7)
  - Sepsis [None]
  - Febrile neutropenia [None]
  - Aspiration [None]
  - Diarrhoea [None]
  - Haematochezia [None]
  - Device related infection [None]
  - Candida test positive [None]
